FAERS Safety Report 23182305 (Version 4)
Quarter: 2024Q1

REPORT INFORMATION
  Report Type: Report from Study
  Country: US (occurrence: US)
  Receive Date: 20231114
  Receipt Date: 20240202
  Transmission Date: 20240410
  Serious: Yes (Hospitalization, Other)
  Sender: FDA-Public Use
  Company Number: US-PFIZER INC-202300100895

PATIENT
  Age: 88 Year
  Sex: Male

DRUGS (27)
  1. VYNDAMAX [Suspect]
     Active Substance: TAFAMIDIS
     Indication: Cardiac amyloidosis
     Dosage: 61 MG, 1X/DAY
     Route: 048
     Dates: start: 202302
  2. VYNDAMAX [Suspect]
     Active Substance: TAFAMIDIS
     Dosage: TAKE 1 CAPSULE (61 MG) ONCE DAILY
     Route: 048
     Dates: start: 202305
  3. HERBALS\TURMERIC [Concomitant]
     Active Substance: HERBALS\TURMERIC
     Dosage: UNK
     Dates: start: 202306
  4. AMLODIPINE BESYLATE [Concomitant]
     Active Substance: AMLODIPINE BESYLATE
     Dosage: UNK
     Dates: start: 202303
  5. AMLODIPINE BESYLATE [Concomitant]
     Active Substance: AMLODIPINE BESYLATE
     Dosage: UNK
     Dates: start: 20230518
  6. LORAZEPAM [Concomitant]
     Active Substance: LORAZEPAM
     Dosage: UNK
     Dates: start: 20230420
  7. LORAZEPAM [Concomitant]
     Active Substance: LORAZEPAM
     Dosage: UNK
     Dates: start: 202306
  8. METOPROLOL TARTRATE [Concomitant]
     Active Substance: METOPROLOL TARTRATE
     Dosage: UNK
  9. FUROSEMIDE [Concomitant]
     Active Substance: FUROSEMIDE
     Dosage: UNK
  10. VOLTAREN ARTHRITIS PAIN [Concomitant]
     Active Substance: DICLOFENAC SODIUM
     Dosage: UNK
  11. ATORVASTATIN CALCIUM [Concomitant]
     Active Substance: ATORVASTATIN CALCIUM
     Dosage: UNK
     Dates: start: 20230615
  12. TAMSULOSIN HYDROCHLORIDE [Concomitant]
     Active Substance: TAMSULOSIN HYDROCHLORIDE
     Dosage: UNK
  13. ALLOPURINOL [Concomitant]
     Active Substance: ALLOPURINOL
     Dosage: UNK
  14. METFORMIN [Concomitant]
     Active Substance: METFORMIN HYDROCHLORIDE
     Dosage: 500 MG TABERGR24H
  15. MELATONIN [Concomitant]
     Active Substance: MELATONIN
     Dosage: 5 MG-1 MG
     Dates: start: 202306
  16. HYDROCHLOROTHIAZIDE\TRIAMTERENE [Concomitant]
     Active Substance: HYDROCHLOROTHIAZIDE\TRIAMTERENE
     Dosage: 37.5-25 MG
  17. ASPIRIN [Concomitant]
     Active Substance: ASPIRIN
     Dosage: UNK
  18. GLIMEPIRIDE [Concomitant]
     Active Substance: GLIMEPIRIDE
     Dosage: UNK
  19. COBAMAMIDE [Concomitant]
     Active Substance: COBAMAMIDE
     Dosage: UNK
  20. CHOLECALCIFEROL [Concomitant]
     Active Substance: CHOLECALCIFEROL
     Dosage: UNK
  21. MUPIROCIN [Concomitant]
     Active Substance: MUPIROCIN
     Dosage: UNK
  22. KETOCONAZOLE [Concomitant]
     Active Substance: KETOCONAZOLE
     Dosage: UNK
  23. VALSARTAN [Concomitant]
     Active Substance: VALSARTAN
     Dosage: UNK
  24. HYDROCHLOROTHIAZIDE [Concomitant]
     Active Substance: HYDROCHLOROTHIAZIDE
     Dosage: 160-12.5MG
  25. CLINDAMYCIN [Concomitant]
     Active Substance: CLINDAMYCIN
     Dosage: 75 MG/ 5 ML SOLN RECON
  26. FLUOCINOLONE ACETONIDE [Concomitant]
     Active Substance: FLUOCINOLONE ACETONIDE
     Dosage: 0.01 % SOLUTION
  27. HYDROCHLOROTHIAZIDE\VALSARTAN [Concomitant]
     Active Substance: HYDROCHLOROTHIAZIDE\VALSARTAN
     Dosage: UNK

REACTIONS (7)
  - Urinary tract disorder [Recovered/Resolved]
  - Urinary tract pain [Recovered/Resolved]
  - Aneurysm [Recovered/Resolved]
  - Depression [Recovered/Resolved]
  - Blood pressure increased [Recovered/Resolved]
  - Gastrointestinal disorder [Recovered/Resolved]
  - Heart rate increased [Recovered/Resolved]

NARRATIVE: CASE EVENT DATE: 20230101
